FAERS Safety Report 10090574 (Version 1)
Quarter: 2014Q2

REPORT INFORMATION
  Report Type: Spontaneous
  Country: US (occurrence: US)
  Receive Date: 20140421
  Receipt Date: 20140421
  Transmission Date: 20141212
  Serious: Yes (Hospitalization)
  Sender: FDA-Public Use
  Company Number: US-BAYER-2014-056719

PATIENT
  Age: 23 Year
  Sex: Female
  Weight: 66 kg

DRUGS (4)
  1. YASMIN [Suspect]
     Indication: CONTRACEPTION
     Dosage: EVERYDAY
     Route: 048
     Dates: end: 20060609
  2. LORTAB [Concomitant]
     Indication: PAIN
     Dosage: UNK UNK, PRN
  3. ADVIL [Concomitant]
     Dosage: 200 MG, PRN
  4. IBUPROFEN [Concomitant]

REACTIONS (2)
  - Pulmonary embolism [Recovering/Resolving]
  - Deep vein thrombosis [Recovered/Resolved]
